FAERS Safety Report 5646403-9 (Version None)
Quarter: 2008Q1

REPORT INFORMATION
  Report Type: 
  Country: None (occurrence: None)
  Receive Date: 20080227
  Receipt Date: 20080218
  Transmission Date: 20080703
  Serious: Yes (Death, Hospitalization)
  Sender: FDA-Public Use
  Company Number: 2008SP002166

PATIENT
  Age: 75 Year
  Sex: Female
  Weight: 71 kg

DRUGS (8)
  1. TEMOZOLOMIDE [Suspect]
     Indication: GLIOBLASTOMA
     Dosage: 130 G; QD; PO
     Route: 048
     Dates: start: 20071204
  2. DEXAMETHASONE TAB [Suspect]
     Indication: DRUG USE FOR UNKNOWN INDICATION
  3. CONTRIM FORTE [Concomitant]
  4. L-THYROXIN 50 [Concomitant]
  5. REMERGIL 30 [Concomitant]
  6. TAVOR [Concomitant]
  7. RISPERDAL [Concomitant]
  8. EUNEPRAN [Concomitant]

REACTIONS (7)
  - APATHY [None]
  - CONFUSIONAL STATE [None]
  - DISORIENTATION [None]
  - NEUTROPENIA [None]
  - PNEUMONIA [None]
  - PYREXIA [None]
  - THROMBOCYTOPENIA [None]
